FAERS Safety Report 7086214-3 (Version None)
Quarter: 2010Q4

REPORT INFORMATION
  Report Type: 
  Country: None (occurrence: None)
  Receive Date: 20101028
  Receipt Date: 20101015
  Transmission Date: 20110411
  Serious: Yes (Other)
  Sender: FDA-Public Use
  Company Number: 017699

PATIENT
  Sex: Female
  Weight: 60 kg

DRUGS (8)
  1. VIMPAT [Suspect]
     Indication: ENCEPHALITIS
     Dosage: (10 ML BID, PEG ADMINISTRATION)
     Dates: start: 20100201
  2. KEPPRA [Suspect]
     Indication: ENCEPHALITIS
     Dosage: (20 ML BID, PEG ADMINISTRATION)
     Dates: start: 20100101
  3. RIVOTRIL (RIVOTRIL) (NOT SPECIFIED) [Suspect]
     Indication: ENCEPHALITIS
     Dosage: (0.5 MG TID, PEG ADMINISTRATION) ; (0.5 MG QD)
  4. BELOC ZIOK [Concomitant]
  5. TORSEMIDE [Concomitant]
  6. NEXIUM [Concomitant]
  7. SPIRONOLACTONE [Concomitant]
  8. EUNERPAN [Concomitant]

REACTIONS (8)
  - AGGRESSION [None]
  - DIET REFUSAL [None]
  - EYE PAIN [None]
  - PRURITUS [None]
  - RESTLESSNESS [None]
  - SOMATOFORM DISORDER [None]
  - SOMNOLENCE [None]
  - STATUS EPILEPTICUS [None]
